FAERS Safety Report 4707450-4 (Version None)
Quarter: 2005Q3

REPORT INFORMATION
  Report Type: 
  Country: None (occurrence: None)
  Receive Date: 20050701
  Receipt Date: 20050616
  Transmission Date: 20060218
  Serious: Yes (Hospitalization)
  Sender: FDA-Public Use
  Company Number: GBWYE750016JUN05

PATIENT
  Age: 84 Year
  Sex: Female

DRUGS (4)
  1. MYAMBUTOL [Suspect]
     Indication: TUBERCULOSIS
     Dosage: 600 MG QD
     Dates: start: 20050513, end: 20050531
  2. RIFATER [Suspect]
     Indication: TUBERCULOSIS
     Dosage: 2/10 MG QD
     Dates: start: 20050513, end: 20050531
  3. LANSOPRAZOLE [Concomitant]
  4. ENALAPRIL MALEATE [Concomitant]

REACTIONS (3)
  - ALANINE AMINOTRANSFERASE INCREASED [None]
  - BLOOD ALKALINE PHOSPHATASE INCREASED [None]
  - JAUNDICE [None]
